FAERS Safety Report 17172698 (Version 1)
Quarter: 2019Q4

REPORT INFORMATION
  Report Type: Spontaneous
  Country: US (occurrence: US)
  Receive Date: 20191126
  Receipt Date: 20191126
  Transmission Date: 20200122
  Serious: Yes (Hospitalization)
  Sender: FDA-Public Use
  Company Number: None

PATIENT
  Sex: Female

DRUGS (8)
  1. CALCIFEROL [Concomitant]
  2. SIMPONI [Suspect]
     Active Substance: GOLIMUMAB
     Indication: PROCTITIS ULCERATIVE
     Dosage: ?          OTHER DOSE:1 PEN;OTHER FREQUENCY:Q4WKS;?
     Route: 058
     Dates: start: 20191029
  3. ENTOCORT EC [Concomitant]
     Active Substance: BUDESONIDE
  4. CALCIUM CARB [Concomitant]
     Active Substance: CALCIUM CARBONATE
  5. VITAMIN B12 [Concomitant]
     Active Substance: CYANOCOBALAMIN
  6. MULTI VITAMIN [Concomitant]
     Active Substance: VITAMINS
  7. VITA-PLUS E [Concomitant]
  8. IMURAN [Concomitant]
     Active Substance: AZATHIOPRINE

REACTIONS (3)
  - Diarrhoea [None]
  - Peripheral swelling [None]
  - Condition aggravated [None]
